FAERS Safety Report 20124862 (Version 3)
Quarter: 2022Q1

REPORT INFORMATION
  Report Type: Spontaneous
  Country: US (occurrence: US)
  Receive Date: 20211129
  Receipt Date: 20220214
  Transmission Date: 20220423
  Serious: No
  Sender: FDA-Public Use
  Company Number: US-BAYER-2021A256016

PATIENT
  Age: 39 Year
  Sex: Female
  Weight: 100.68 kg

DRUGS (12)
  1. MIRENA [Suspect]
     Active Substance: LEVONORGESTREL
     Indication: Contraception
     Dosage: 20?G/DAY
     Route: 015
     Dates: start: 20151005, end: 20211110
  2. ALPRAZOLAM [Concomitant]
     Active Substance: ALPRAZOLAM
  3. BUPROPION HYDROCHLORIDE XL [Concomitant]
     Active Substance: BUPROPION HYDROCHLORIDE
  4. DIAZEPAM [Concomitant]
     Active Substance: DIAZEPAM
  5. EPIPEN [Concomitant]
     Active Substance: EPINEPHRINE
  6. HYDROCODONE [Concomitant]
     Active Substance: HYDROCODONE
  7. IBUPROFEN [Concomitant]
     Active Substance: IBUPROFEN
  8. LORATADINE [Concomitant]
     Active Substance: LORATADINE
  9. MISOPROSTOL [Concomitant]
     Active Substance: MISOPROSTOL
  10. OMEPRAZOLE [Concomitant]
     Active Substance: OMEPRAZOLE
  11. PROZAC [Concomitant]
     Active Substance: FLUOXETINE HYDROCHLORIDE
  12. TRAZODONE [Concomitant]
     Active Substance: TRAZODONE HYDROCHLORIDE

REACTIONS (4)
  - Device expulsion [Recovered/Resolved]
  - Abdominal pain lower [Recovered/Resolved]
  - Pelvic pain [Recovered/Resolved]
  - Perineal pain [Recovered/Resolved]

NARRATIVE: CASE EVENT DATE: 20211025
